FAERS Safety Report 5360690-6 (Version None)
Quarter: 2007Q2

REPORT INFORMATION
  Report Type: 
  Country: None (occurrence: None)
  Receive Date: 20070618
  Receipt Date: 20070601
  Transmission Date: 20071010
  Serious: Yes (Other)
  Sender: FDA-Public Use
  Company Number: ZA-ROCHE-500775

PATIENT
  Age: 60 Year
  Sex: Male

DRUGS (3)
  1. PEGASYS [Suspect]
     Dosage: STRENGTH REPORTED AS 180 MCG/0.5 ML.
     Route: 058
     Dates: start: 20070401, end: 20070501
  2. PEGASYS [Suspect]
     Dosage: DOSE REDUCED TO 135 MCG PER WEEK.
     Route: 058
  3. RIBAVIRIN [Concomitant]
     Route: 048
     Dates: start: 20070401, end: 20070501

REACTIONS (2)
  - AGITATION [None]
  - CONFUSIONAL STATE [None]
